FAERS Safety Report 8366152 (Version 2)
Quarter: 2013Q1

REPORT INFORMATION
  Report Type: Spontaneous
  Country: PR (occurrence: PR)
  Receive Date: 20120128
  Receipt Date: 20130130
  Transmission Date: 20140127
  Serious: No
  Sender: FDA-Public Use
  Company Number: PR-ABBOTT-11P-131-0713089-00

PATIENT
  Sex: Female
  Weight: 79.45 kg

DRUGS (6)
  1. HUMIRA 40 MG/0.8 ML PEN [Suspect]
     Indication: RHEUMATOID ARTHRITIS
     Dosage: 1 PEN EVERY 15 DAYS
     Route: 058
     Dates: start: 2009
  2. ENALAPRIL [Suspect]
     Indication: HYPERTENSION
     Dates: start: 201002
  3. ENALAPRIL [Concomitant]
     Indication: HYPERTENSION
     Route: 048
  4. FLEXERIL [Concomitant]
     Indication: SURGERY
     Dosage: AS INDICATED
     Route: 048
  5. METHOTREXATE [Concomitant]
     Indication: RHEUMATOID ARTHRITIS
     Dosage: 10MG WEEKLY; 4 TABLETS WEEKLY
     Route: 048
  6. LEXAPRO [Concomitant]
     Indication: DEPRESSION
     Dates: start: 20110419

REACTIONS (6)
  - Mobility decreased [Unknown]
  - Sinusitis [Not Recovered/Not Resolved]
  - Tremor [Unknown]
  - Laryngitis [Not Recovered/Not Resolved]
  - Hypertension [Recovering/Resolving]
  - Quality of life decreased [Unknown]
